FAERS Safety Report 20990719 (Version 1)
Quarter: 2022Q2

REPORT INFORMATION
  Report Type: Report from Study
  Country: CA (occurrence: CA)
  Receive Date: 20220622
  Receipt Date: 20220622
  Transmission Date: 20220721
  Serious: Yes (Other)
  Sender: FDA-Public Use
  Company Number: CA-CELLTRION INC.-2022CA007179

PATIENT

DRUGS (1)
  1. TRUXIMA [Suspect]
     Active Substance: RITUXIMAB-ABBS
     Indication: Warm autoimmune haemolytic anaemia
     Dosage: 750 MG, WEEKLY FOR FOUR DOSES (TOTAL QUANTITY REQUESTED: 3000 MG; DOSE OF 375 MG/M2)
     Route: 042

REACTIONS (3)
  - Warm autoimmune haemolytic anaemia [Unknown]
  - Insurance issue [Unknown]
  - Off label use [Unknown]
